FAERS Safety Report 22155064 (Version 2)
Quarter: 2024Q2

REPORT INFORMATION
  Report Type: Spontaneous
  Country: JP (occurrence: JP)
  Receive Date: 20230330
  Receipt Date: 20240405
  Transmission Date: 20240716
  Serious: Yes (Hospitalization, Other)
  Sender: FDA-Public Use
  Company Number: JP-Accord-306129

PATIENT
  Age: 69 Year
  Sex: Male

DRUGS (1)
  1. GEMCITABINE [Suspect]
     Active Substance: GEMCITABINE
     Indication: Cholangiocarcinoma
     Dosage: 600 MG/BODY, EVERY TWO WEEKS ADMINISTRATION

REACTIONS (2)
  - Eosinophilic fasciitis [Recovered/Resolved]
  - Scleroderma [Recovered/Resolved]
